FAERS Safety Report 8817728 (Version 1)
Quarter: 2012Q4

REPORT INFORMATION
  Report Type: 
  Country: US (occurrence: US)
  Receive Date: 20121001
  Receipt Date: 20121001
  Transmission Date: 20130627
  Serious: Yes (Hospitalization, Other)
  Sender: FDA-Public Use
  Company Number: US-PFIZER INC-2012238735

PATIENT
  Age: 61 Year
  Sex: Female
  Weight: 68.03 kg

DRUGS (10)
  1. REVATIO [Suspect]
     Indication: SCLERODERMA
     Dosage: 20 mg, three times a day
  2. REVATIO [Suspect]
     Dosage: 20 mg, as needed
  3. TRACLEER [Concomitant]
     Indication: SCLERODERMA
     Dosage: 125 mg, 2x/day
  4. ENBREL [Concomitant]
     Indication: RHEUMATOID ARTHRITIS
     Dosage: 50 mg, weekly
  5. ARAVA [Concomitant]
     Indication: SCLERODERMA
     Dosage: 20 mg, daily
  6. NORVASC [Concomitant]
     Indication: BLOOD PRESSURE ABNORMAL
     Dosage: 10 mg, daily
  7. NEXIUM [Concomitant]
     Indication: GASTROOESOPHAGEAL REFLUX DISEASE
     Dosage: 40 mg, daily
  8. WARFARIN [Concomitant]
     Indication: THROMBOSIS
     Dosage: 5 mg, daily
  9. AMBIEN [Concomitant]
     Dosage: UNK, as needed
  10. CLONAZEPAM [Concomitant]
     Dosage: UNK, as needed

REACTIONS (2)
  - Cellulitis [Unknown]
  - Wound [Unknown]
